FAERS Safety Report 20222053 (Version 5)
Quarter: 2022Q2

REPORT INFORMATION
  Report Type: Spontaneous
  Country: DE (occurrence: DE)
  Receive Date: 20211223
  Receipt Date: 20220510
  Transmission Date: 20220721
  Serious: Yes (Hospitalization)
  Sender: FDA-Public Use
  Company Number: DE-BIOGEN-2021BI01080070

PATIENT
  Age: 23 Year
  Sex: Female
  Weight: 82 kg

DRUGS (5)
  1. TYSABRI [Suspect]
     Active Substance: NATALIZUMAB
     Indication: Relapsing-remitting multiple sclerosis
     Route: 065
     Dates: start: 200110
  2. TYSABRI [Suspect]
     Active Substance: NATALIZUMAB
     Route: 065
     Dates: start: 201711
  3. TYSABRI [Suspect]
     Active Substance: NATALIZUMAB
     Route: 065
     Dates: start: 20201001
  4. TYSABRI [Suspect]
     Active Substance: NATALIZUMAB
     Route: 065
     Dates: end: 202102
  5. TYSABRI [Suspect]
     Active Substance: NATALIZUMAB
     Route: 065
     Dates: end: 20210308

REACTIONS (1)
  - Multiple sclerosis relapse [Recovered/Resolved]

NARRATIVE: CASE EVENT DATE: 20210201
